FAERS Safety Report 4351735-0 (Version None)
Quarter: 2004Q2

REPORT INFORMATION
  Report Type: 
  Country: None (occurrence: None)
  Receive Date: 20040427
  Receipt Date: 20040414
  Transmission Date: 20050107
  Serious: Yes (Hospitalization)
  Sender: FDA-Public Use
  Company Number: 2004025866

PATIENT
  Sex: 0

DRUGS (3)
  1. DILANTIN INJ [Suspect]
     Indication: EPILEPSY
     Dosage: 800 MG (BID), INTRAVENOUS
     Route: 042
     Dates: start: 20040401
  2. THIOPENTAL SODIUM [Suspect]
     Indication: ILL-DEFINED DISORDER
     Dates: start: 20040401
  3. VALPROATE SODIUM [Concomitant]

REACTIONS (3)
  - ANTICONVULSANT DRUG LEVEL BELOW THERAPEUTIC [None]
  - CONVULSION [None]
  - DRUG INTERACTION [None]
